FAERS Safety Report 10174919 (Version 1)
Quarter: 2014Q2

REPORT INFORMATION
  Report Type: Spontaneous
  Country: US (occurrence: US)
  Receive Date: 20140515
  Receipt Date: 20140515
  Transmission Date: 20141212
  Serious: Yes (Death, Hospitalization)
  Sender: FDA-Public Use
  Company Number: US-MYLANLABS-2014S1010461

PATIENT
  Age: 63 Year
  Sex: Female

DRUGS (5)
  1. HYALGAN [Suspect]
     Indication: OSTEOARTHRITIS
     Dosage: WAITING AT LEAST 6 MONTHS BETWEEN EACH SERIES OF 5 INJECTIONS
     Route: 014
  2. TAXOTERE [Suspect]
     Indication: INVASIVE DUCTAL BREAST CARCINOMA
     Dosage: 1 ROUND OF CHEMOTHERAPY
     Route: 065
  3. CARBOPLATIN [Suspect]
     Indication: INVASIVE DUCTAL BREAST CARCINOMA
     Dosage: 1 ROUND OF CHEMOTHERAPY
     Route: 065
  4. HERCEPTIN [Suspect]
     Indication: INVASIVE DUCTAL BREAST CARCINOMA
     Dosage: 1 ROUND OF CHEMOTHERAPY
     Route: 065
  5. BETADIN [Concomitant]
     Dosage: BETADINE
     Route: 065

REACTIONS (3)
  - Necrotising fasciitis [Fatal]
  - Septic shock [Fatal]
  - Multi-organ failure [Fatal]
